FAERS Safety Report 7817979-8 (Version None)
Quarter: 2011Q4

REPORT INFORMATION
  Report Type: 
  Country: None (occurrence: None)
  Receive Date: 20111017
  Receipt Date: 20111007
  Transmission Date: 20120403
  Serious: Yes (Hospitalization)
  Sender: FDA-Public Use
  Company Number: CN-GLAXOSMITHKLINE-B0755763A

PATIENT
  Age: 40 Year
  Sex: Male

DRUGS (1)
  1. FLUTICASONE PROPIONATE/SALMETEROL [Suspect]
     Indication: ASTHMA
     Dosage: 60PUFF PER DAY
     Route: 055

REACTIONS (2)
  - OVERDOSE [None]
  - HEART RATE INCREASED [None]
